FAERS Safety Report 9272184 (Version 2)
Quarter: 2013Q2

REPORT INFORMATION
  Report Type: Spontaneous
  Country: US (occurrence: US)
  Receive Date: 20130506
  Receipt Date: 20130506
  Transmission Date: 20140414
  Serious: Yes (Other)
  Sender: FDA-Public Use
  Company Number: CHPA2013US007326

PATIENT
  Age: 67 Year
  Sex: Male

DRUGS (2)
  1. LAMISIL AT JOCK ITCH CREAM [Suspect]
     Indication: TINEA CRURIS
     Dosage: UNK, UNK
     Route: 061
     Dates: start: 2012, end: 20130426
  2. LAMISIL AT JOCK ITCH CREAM [Suspect]
     Dosage: BRUSHED TEETH WITH IT TWICE
     Route: 048
     Dates: start: 20130425, end: 20130426

REACTIONS (8)
  - Neuropathy peripheral [Unknown]
  - Paraesthesia [Recovering/Resolving]
  - Musculoskeletal pain [Recovered/Resolved]
  - Neck pain [Recovered/Resolved]
  - Oropharyngeal pain [Recovered/Resolved]
  - Flatulence [Recovered/Resolved]
  - Drug administered at inappropriate site [Unknown]
  - Expired drug administered [Unknown]
